FAERS Safety Report 7255912-0 (Version None)
Quarter: 2011Q1

REPORT INFORMATION
  Report Type: 
  Country: None (occurrence: None)
  Receive Date: 20110129
  Receipt Date: 20100530
  Transmission Date: 20110831
  Serious: No
  Sender: FDA-Public Use
  Company Number: US-ABBOTT-10P-163-0648338-00

PATIENT
  Age: 45 Year
  Sex: Female

DRUGS (4)
  1. PREVACID [Concomitant]
     Indication: PRODUCT USED FOR UNKNOWN INDICATION
  2. HUMIRA [Suspect]
     Indication: ANKYLOSING SPONDYLITIS
     Dates: start: 20090501
  3. PREDIFORTE EYE DROPS [Concomitant]
     Indication: UVEITIS
  4. INDOMETHACIN [Concomitant]
     Indication: PRODUCT USED FOR UNKNOWN INDICATION

REACTIONS (3)
  - INJECTION SITE VESICLES [None]
  - PAIN [None]
  - INCORRECT DOSE ADMINISTERED [None]
